FAERS Safety Report 23614028 (Version 2)
Quarter: 2024Q1

REPORT INFORMATION
  Report Type: Spontaneous
  Country: IT (occurrence: IT)
  Receive Date: 20240310
  Receipt Date: 20240314
  Transmission Date: 20240410
  Serious: Yes (Other)
  Sender: FDA-Public Use
  Company Number: IT-MLMSERVICE-20240301-4862522-1

PATIENT
  Age: 55 Year
  Sex: Female

DRUGS (5)
  1. DEXAMETHASONE [Suspect]
     Active Substance: DEXAMETHASONE
     Indication: Neurological symptom
     Route: 065
  2. MANNITOL [Concomitant]
     Active Substance: MANNITOL
     Indication: Neurological symptom
     Route: 065
  3. IMIPENEM [Concomitant]
     Active Substance: IMIPENEM
     Indication: Nocardiosis
     Route: 042
  4. RAMIPRIL [Concomitant]
     Active Substance: RAMIPRIL
     Indication: Hypertension
  5. SULFAMETHOXAZOLE\TRIMETHOPRIM [Concomitant]
     Active Substance: SULFAMETHOXAZOLE\TRIMETHOPRIM
     Indication: Nocardiosis
     Dosage: EQUALLY DIVIDED EVERY 8 HOURS
     Route: 042

REACTIONS (2)
  - Leukopenia [Unknown]
  - Lymphopenia [Unknown]
